FAERS Safety Report 8859628 (Version 1)
Quarter: 2012Q4

REPORT INFORMATION
  Report Type: Spontaneous
  Country: US (occurrence: None)
  Receive Date: 20121022
  Receipt Date: 20121022
  Transmission Date: 20130627
  Serious: Yes (Hospitalization, Other)
  Sender: FDA-Public Use
  Company Number: AUR-APL-2012-04393

PATIENT
  Age: 49 Year
  Sex: Male

DRUGS (7)
  1. SERTRALINE (SERTRALINE) (SERTRALINE) [Suspect]
     Indication: DRUG USE FOR UNKNOWN INDICATION
  2. ZOLINZA [Suspect]
     Indication: CUTANEOUS T-CELL LYMPHOMA
  3. DOXEPIN [Suspect]
     Indication: DRUG USE FOR UNKNOWN INDICATION
  4. HYDROCHLOROETHIAZIDE (HYDROCHLOROTHIAZIDE [Concomitant]
  5. NPH INSULIN (INSULIN INJECTION, ISOPHANE) [Concomitant]
  6. NAPROXEN SODIUM (NAPROXEN SODIUM) [Concomitant]
  7. OXYCODONE (OXYCODONE) [Concomitant]

REACTIONS (18)
  - Torsade de pointes [None]
  - Haematemesis [None]
  - Haematochezia [None]
  - Syncope [None]
  - Electrocardiogram T wave inversion [None]
  - Blood urea increased [None]
  - Blood creatinine increased [None]
  - Blood glucose increased [None]
  - Haemoglobin decreased [None]
  - Platelet count decreased [None]
  - Aortic valve incompetence [None]
  - Tricuspid valve incompetence [None]
  - Mitral valve incompetence [None]
  - Pericardial effusion [None]
  - Ventricular tachycardia [None]
  - Pulse absent [None]
  - Hypokalaemia [None]
  - Drug interaction [None]
